FAERS Safety Report 11259662 (Version 1)
Quarter: 2015Q3

REPORT INFORMATION
  Report Type: Spontaneous
  Country: US (occurrence: None)
  Receive Date: 20150709
  Receipt Date: 20150709
  Transmission Date: 20151125
  Serious: Yes (Hospitalization)
  Sender: FDA-Public Use
  Company Number: None

PATIENT
  Age: 19 Year
  Sex: Male

DRUGS (1)
  1. MINOCYCLINE [Suspect]
     Active Substance: MINOCYCLINE\MINOCYCLINE HYDROCHLORIDE
     Dates: start: 20120501, end: 20140505

REACTIONS (3)
  - Drug-induced liver injury [None]
  - Autoimmune hepatitis [None]
  - Weight decreased [None]

NARRATIVE: CASE EVENT DATE: 20140504
